FAERS Safety Report 8199386-4 (Version None)
Quarter: 2012Q1

REPORT INFORMATION
  Report Type: 
  Country: None (occurrence: None)
  Receive Date: 20120309
  Receipt Date: 20120301
  Transmission Date: 20120608
  Serious: Yes (Hospitalization)
  Sender: FDA-Public Use
  Company Number: US-FRI-1000028771

PATIENT
  Age: 55 Year
  Sex: Male

DRUGS (2)
  1. VIIBRYD [Suspect]
     Dosage: 20 MG
     Route: 048
     Dates: start: 20120201, end: 20120201
  2. VIIBRYD [Suspect]
     Indication: DEPRESSION
     Dosage: 10 MG
     Route: 048
     Dates: start: 20120201, end: 20120201

REACTIONS (4)
  - ANXIETY [None]
  - IRRITABILITY [None]
  - SLEEP DISORDER [None]
  - ENERGY INCREASED [None]
